FAERS Safety Report 18969813 (Version 7)
Quarter: 2021Q3

REPORT INFORMATION
  Report Type: Report from Study
  Country: US (occurrence: US)
  Receive Date: 20210304
  Receipt Date: 20210906
  Transmission Date: 20211014
  Serious: Yes (Death, Hospitalization, Other)
  Sender: FDA-Public Use
  Company Number: NVSC2020US153331

PATIENT
  Age: 65 Year
  Sex: Male
  Weight: 72.8 kg

DRUGS (17)
  1. HYDROMORPHONE [Concomitant]
     Active Substance: HYDROMORPHONE
     Dosage: 1 UNK
     Route: 042
     Dates: start: 20200320, end: 20200320
  2. OXYCODONE [Concomitant]
     Active Substance: OXYCODONE
     Dosage: 20 UNK
     Route: 048
     Dates: start: 20200321, end: 20200322
  3. HYDROMORPHONE [Concomitant]
     Active Substance: HYDROMORPHONE
     Indication: ABDOMINAL PAIN
     Dosage: 1 UNK
     Route: 042
     Dates: start: 20200319, end: 20200319
  4. HYDROMORPHONE [Concomitant]
     Active Substance: HYDROMORPHONE
     Dosage: 6 UNK
     Route: 048
     Dates: start: 20200321, end: 20200321
  5. CYCLOPHOSPHAMIDE. [Concomitant]
     Active Substance: CYCLOPHOSPHAMIDE
     Indication: CHEMOTHERAPY
     Dosage: UNK
     Route: 065
     Dates: start: 20200205
  6. ACETAMINOPHEN. [Concomitant]
     Active Substance: ACETAMINOPHEN
     Indication: ABDOMINAL PAIN
     Dosage: 650 UNK
     Route: 048
     Dates: start: 20200319, end: 20200322
  7. HYDROMORPHONE [Concomitant]
     Active Substance: HYDROMORPHONE
     Dosage: 2 UNK
     Route: 048
     Dates: start: 20200321, end: 20200321
  8. HYDROMORPHONE [Concomitant]
     Active Substance: HYDROMORPHONE
     Dosage: 4 UNK
     Route: 048
     Dates: start: 20200321, end: 20200321
  9. HYDROMORPHONE [Concomitant]
     Active Substance: HYDROMORPHONE
     Dosage: 0.5 UNK
     Route: 042
     Dates: start: 20200322, end: 20200322
  10. HYDROMORPHONE [Concomitant]
     Active Substance: HYDROMORPHONE
     Dosage: 2 UNK
     Route: 048
     Dates: start: 20200320, end: 20200320
  11. HYDROMORPHONE [Concomitant]
     Active Substance: HYDROMORPHONE
     Dosage: 6 UNK
     Route: 048
     Dates: start: 20200322, end: 20200322
  12. FLUDARABINE [Concomitant]
     Active Substance: FLUDARABINE PHOSPHATE
     Indication: CHEMOTHERAPY
     Dosage: UNK
     Route: 065
     Dates: start: 20200205
  13. LEVOFLOXACIN. [Concomitant]
     Active Substance: LEVOFLOXACIN
     Indication: PRODUCT USED FOR UNKNOWN INDICATION
     Route: 065
  14. OXYCODONE [Concomitant]
     Active Substance: OXYCODONE
     Indication: ABDOMINAL PAIN
     Dosage: 10 UNK
     Route: 048
     Dates: start: 20200319, end: 20200321
  15. KYMRIAH [Suspect]
     Active Substance: TISAGENLECLEUCEL
     Indication: DIFFUSE LARGE B-CELL LYMPHOMA
     Dosage: 0.8 X 10E3 POSITIVE T?CELLS/ 4.0 E7 CAR?POS VIABLE TCELLS, ONCE/SINGLE
     Route: 042
     Dates: start: 20200211
  16. LACTATED RINGERS SOLUTION [Concomitant]
     Active Substance: CALCIUM CHLORIDE\POTASSIUM CHLORIDE\SODIUM CHLORIDE\SODIUM LACTATE
     Indication: PRODUCT USED FOR UNKNOWN INDICATION
     Dosage: 500 UNK
     Route: 042
     Dates: start: 20200207, end: 20200207
  17. HYDROMORPHONE [Concomitant]
     Active Substance: HYDROMORPHONE
     Dosage: 0.5 UNK
     Route: 042
     Dates: start: 20200319, end: 20200319

REACTIONS (20)
  - Diffuse large B-cell lymphoma [Fatal]
  - Immune effector cell-associated neurotoxicity syndrome [Recovered/Resolved]
  - Oedema peripheral [Recovered/Resolved with Sequelae]
  - Abdominal pain [Recovered/Resolved]
  - Diarrhoea [Unknown]
  - Malnutrition [Not Recovered/Not Resolved]
  - Malignant neoplasm progression [Fatal]
  - Pyrexia [Recovered/Resolved]
  - Hiccups [Not Recovered/Not Resolved]
  - Constipation [Recovered/Resolved]
  - Nausea [Not Recovered/Not Resolved]
  - Back pain [Recovered/Resolved]
  - Fatigue [Recovered/Resolved]
  - Vomiting [Not Recovered/Not Resolved]
  - Cytokine release syndrome [Recovered/Resolved]
  - Infrequent bowel movements [Recovered/Resolved]
  - Pain [Unknown]
  - Anaemia [Not Recovered/Not Resolved]
  - Abdominal distension [Recovered/Resolved]
  - Dysuria [Recovered/Resolved]

NARRATIVE: CASE EVENT DATE: 20200211
